FAERS Safety Report 5807981-X (Version None)
Quarter: 2008Q3

REPORT INFORMATION
  Report Type: 
  Country: None (occurrence: None)
  Receive Date: 20080711
  Receipt Date: 20080701
  Transmission Date: 20090109
  Serious: Yes (Other)
  Sender: FDA-Public Use
  Company Number: US-PFIZER INC-2008053505

PATIENT
  Age: 24 Year
  Sex: Male

DRUGS (1)
  1. ZOLOFT [Suspect]
     Indication: DEPRESSION

REACTIONS (7)
  - INSOMNIA [None]
  - JOB DISSATISFACTION [None]
  - OBSESSIVE-COMPULSIVE DISORDER [None]
  - PARANOIA [None]
  - SOCIAL PHOBIA [None]
  - SOCIAL PROBLEM [None]
  - SUICIDE ATTEMPT [None]
